FAERS Safety Report 8117967-0 (Version None)
Quarter: 2011Q4

REPORT INFORMATION
  Report Type: 
  Country: None (occurrence: None)
  Receive Date: 20111227
  Receipt Date: 20110627
  Transmission Date: 20120403
  Serious: Yes (Other)
  Sender: FDA-Public Use
  Company Number: PHHY2011US57907

PATIENT
  Age: 53 Year
  Sex: Female

DRUGS (1)
  1. FEMARA [Suspect]
     Indication: BREAST CANCER
     Dosage: 2.5 MG, ORAL
     Route: 048
     Dates: start: 20100101

REACTIONS (7)
  - ANKLE FRACTURE [None]
  - ARTHRALGIA [None]
  - INSOMNIA [None]
  - MOOD SWINGS [None]
  - FATIGUE [None]
  - HEADACHE [None]
  - FRUSTRATION [None]
